FAERS Safety Report 9443952 (Version 2)
Quarter: 2013Q3

REPORT INFORMATION
  Report Type: Spontaneous
  Country: US (occurrence: US)
  Receive Date: 20130807
  Receipt Date: 20130904
  Transmission Date: 20140515
  Serious: Yes (Hospitalization)
  Sender: FDA-Public Use
  Company Number: US-BIOGENIDEC-2013BI066565

PATIENT
  Age: 52 Year
  Sex: Female

DRUGS (1)
  1. AVONEX [Suspect]
     Indication: MULTIPLE SCLEROSIS
     Route: 030
     Dates: start: 20101202

REACTIONS (8)
  - Convulsion [Unknown]
  - Progressive multiple sclerosis [Unknown]
  - Cerebral atrophy [Unknown]
  - Lethargy [Recovered/Resolved]
  - Memory impairment [Not Recovered/Not Resolved]
  - Irritability [Recovered/Resolved]
  - Apathy [Recovered/Resolved]
  - Fatigue [Recovered/Resolved]
